FAERS Safety Report 12813755 (Version 1)
Quarter: 2016Q4

REPORT INFORMATION
  Report Type: Spontaneous
  Country: US (occurrence: US)
  Receive Date: 20161005
  Receipt Date: 20161005
  Transmission Date: 20170207
  Serious: No
  Sender: FDA-Public Use
  Company Number: US-AMGEN-USASP2016034377

PATIENT
  Age: 78 Year
  Sex: Female

DRUGS (1)
  1. PROLIA [Suspect]
     Active Substance: DENOSUMAB
     Indication: PRODUCT USED FOR UNKNOWN INDICATION
     Dosage: UNK,
     Route: 065
     Dates: start: 20150326

REACTIONS (9)
  - Balance disorder [Unknown]
  - Skin exfoliation [Unknown]
  - Joint lock [Unknown]
  - Pruritus [Unknown]
  - Musculoskeletal chest pain [Unknown]
  - Tinnitus [Unknown]
  - Feeling abnormal [Unknown]
  - Dry skin [Unknown]
  - Alopecia [Unknown]
